FAERS Safety Report 19391767 (Version 1)
Quarter: 2021Q2

REPORT INFORMATION
  Report Type: Report from Study
  Country: US (occurrence: US)
  Receive Date: 20210608
  Receipt Date: 20210608
  Transmission Date: 20210717
  Serious: Yes (Other)
  Sender: FDA-Public Use
  Company Number: US-GILEAD-2021-0534800

PATIENT
  Age: 35 Year
  Sex: Male

DRUGS (1)
  1. BICTEGRAVIR W/EMTRICITABINE/TENOFOVIR ALAFENAMIDE [Suspect]
     Active Substance: BICTEGRAVIR\EMTRICITABINE\TENOFOVIR ALAFENAMIDE
     Indication: HIV INFECTION
     Dosage: 275 MG, QD
     Route: 048
     Dates: start: 202006

REACTIONS (5)
  - Muscle spasms [Not Recovered/Not Resolved]
  - Sepsis [Recovered/Resolved]
  - Enteritis infectious [Recovered/Resolved]
  - Haemorrhage [Not Recovered/Not Resolved]
  - Pharyngitis [Recovered/Resolved]

NARRATIVE: CASE EVENT DATE: 202006
